FAERS Safety Report 18279076 (Version 1)
Quarter: 2020Q3

REPORT INFORMATION
  Report Type: Spontaneous
  Country: CN (occurrence: CN)
  Receive Date: 20200917
  Receipt Date: 20200917
  Transmission Date: 20201103
  Serious: Yes (Death, Other)
  Sender: FDA-Public Use
  Company Number: CN-ROCHE-2679685

PATIENT
  Age: 57 Year
  Sex: Male

DRUGS (2)
  1. AVASTIN [Suspect]
     Active Substance: BEVACIZUMAB
     Indication: LUNG NEOPLASM MALIGNANT
     Route: 041
     Dates: start: 20200405, end: 20200904
  2. GEFITINIB. [Concomitant]
     Active Substance: GEFITINIB
     Indication: LUNG NEOPLASM MALIGNANT
     Dates: start: 20200405, end: 20200904

REACTIONS (3)
  - Atrial fibrillation [Recovering/Resolving]
  - Chest discomfort [Recovering/Resolving]
  - Cardiac disorder [Fatal]

NARRATIVE: CASE EVENT DATE: 202005
